FAERS Safety Report 10696233 (Version 1)
Quarter: 2015Q1

REPORT INFORMATION
  Report Type: Spontaneous
  Country: US (occurrence: None)
  Receive Date: 20150106
  Receipt Date: 20150106
  Transmission Date: 20150721
  Serious: Yes (Life-Threatening, Hospitalization, Disabling, Other)
  Sender: FDA-Public Use
  Company Number: None

PATIENT
  Age: 28 Year
  Sex: Female
  Weight: 64.86 kg

DRUGS (2)
  1. DEPO-PROVERA [Suspect]
     Active Substance: MEDROXYPROGESTERONE ACETATE
     Indication: CONTRACEPTION
     Dosage: ONE PILL AT BEDTIME
     Route: 048
  2. ORTHO-NOVUM [Suspect]
     Active Substance: ETHINYL ESTRADIOL\NORETHINDRONE

REACTIONS (3)
  - Back pain [None]
  - Hepatic neoplasm [None]
  - Musculoskeletal chest pain [None]

NARRATIVE: CASE EVENT DATE: 20050714
